FAERS Safety Report 8557171-5 (Version None)
Quarter: 2012Q3

REPORT INFORMATION
  Report Type: 
  Country: None (occurrence: None)
  Receive Date: 20120801
  Receipt Date: 20120726
  Transmission Date: 20120928
  Serious: Yes (Hospitalization, Other)
  Sender: FDA-Public Use
  Company Number: US-009507513-2011SP032589

PATIENT

DRUGS (1)
  1. NUVARING [Suspect]
     Indication: CONTRACEPTION
     Dates: start: 20060401, end: 20081016

REACTIONS (11)
  - PAPILLOMA VIRAL INFECTION [None]
  - METRORRHAGIA [None]
  - SKIN DISORDER [None]
  - HYPERCOAGULATION [None]
  - FACIAL BONES FRACTURE [None]
  - CONJUNCTIVAL HAEMORRHAGE [None]
  - CERVICAL DYSPLASIA [None]
  - BLOOD CHOLESTEROL INCREASED [None]
  - URINARY TRACT INFECTION [None]
  - PULMONARY EMBOLISM [None]
  - DEEP VEIN THROMBOSIS [None]
